FAERS Safety Report 6874105-X (Version None)
Quarter: 2010Q3

REPORT INFORMATION
  Report Type: 
  Country: None (occurrence: None)
  Receive Date: 20100723
  Receipt Date: 20090416
  Transmission Date: 20110219
  Serious: No
  Sender: FDA-Public Use
  Company Number: US-PFIZER INC-2009202676

PATIENT
  Sex: Female
  Weight: 45.268 kg

DRUGS (3)
  1. CHANTIX [Suspect]
     Indication: SMOKING CESSATION THERAPY
     Dates: start: 20090401
  2. MS CONTIN [Concomitant]
     Dosage: 15 MG, 3X/DAY
  3. OXYCODONE [Concomitant]
     Dosage: UNK

REACTIONS (1)
  - SOMNOLENCE [None]
